FAERS Safety Report 5218513-1 (Version None)
Quarter: 2007Q1

REPORT INFORMATION
  Report Type: 
  Country: None (occurrence: None)
  Receive Date: 20061130
  Receipt Date: 20060609
  Transmission Date: 20070707
  Serious: Yes (Hospitalization)
  Sender: FDA-Public Use
  Company Number: US200606002723

PATIENT
  Sex: Male
  Weight: 72.6 kg

DRUGS (4)
  1. ZYPREXA [Suspect]
     Indication: BIPOLAR I DISORDER
     Dosage: SEE IMAGE
     Dates: start: 20020101
  2. ZYPREXA [Suspect]
     Indication: BIPOLAR I DISORDER
     Dosage: SEE IMAGE
     Dates: start: 20040830
  3. SERTRALINE [Concomitant]
  4. EFFEXOR [Concomitant]

REACTIONS (1)
  - PANCREATITIS [None]
